FAERS Safety Report 5534254-5 (Version None)
Quarter: 2007Q4

REPORT INFORMATION
  Report Type: 
  Country: None (occurrence: None)
  Receive Date: 20071205
  Receipt Date: 20071129
  Transmission Date: 20080405
  Serious: Yes (Other)
  Sender: FDA-Public Use
  Company Number: GB-AVENTIS-200721033GDDC

PATIENT
  Age: 16 Year
  Sex: Female
  Weight: 49.85 kg

DRUGS (3)
  1. RIFINAH [Suspect]
     Indication: TUBERCULOSIS
     Route: 048
     Dates: start: 20071030, end: 20071112
  2. ETHAMBUTOL HYDROCHLORIDE [Concomitant]
     Indication: TUBERCULOSIS
     Route: 048
     Dates: start: 20070225, end: 20071029
  3. RIFATER [Concomitant]
     Indication: TUBERCULOSIS
     Dates: start: 20070225, end: 20071029

REACTIONS (3)
  - AMENORRHOEA [None]
  - DYSPEPSIA [None]
  - WEIGHT DECREASED [None]
